FAERS Safety Report 21449474 (Version 1)
Quarter: 2022Q4

REPORT INFORMATION
  Report Type: Spontaneous
  Country: IT (occurrence: IT)
  Receive Date: 20221013
  Receipt Date: 20221013
  Transmission Date: 20230113
  Serious: Yes (Other)
  Sender: FDA-Public Use
  Company Number: IT-MINISAL02-887111

PATIENT
  Age: 70 Year
  Sex: Male

DRUGS (2)
  1. PIPERACILLIN AND TAZOBACTAM [Suspect]
     Active Substance: PIPERACILLIN SODIUM\TAZOBACTAM SODIUM
     Indication: Skin bacterial infection
     Dosage: 2.250 GRAM, 3 TIMES A DAY (2.250 G X3/DIE EV)
     Route: 042
     Dates: start: 20220914, end: 20220921
  2. DAPTOMYCIN [Suspect]
     Active Substance: DAPTOMYCIN
     Indication: Skin bacterial infection
     Dosage: 350 MILLIGRAM, ONCE A DAY (350 MG/DIE)
     Route: 042
     Dates: start: 20220916, end: 20220921

REACTIONS (3)
  - Autoimmune anaemia [Recovering/Resolving]
  - Thrombocytopenia [Recovering/Resolving]
  - Leukocytosis [Recovering/Resolving]

NARRATIVE: CASE EVENT DATE: 20220918
